FAERS Safety Report 8778947 (Version 1)
Quarter: 2012Q4

REPORT INFORMATION
  Report Type: 
  Country: US (occurrence: US)
  Receive Date: 20120912
  Receipt Date: 20120912
  Transmission Date: 20130627
  Serious: No
  Sender: FDA-Public Use
  Company Number: US-BAYER-2012-094896

PATIENT
  Age: 41 Year
  Sex: Female

DRUGS (1)
  1. MIRENA [Suspect]
     Indication: MENSTRUAL CYCLE MANAGEMENT
     Dosage: 20 mcg/24hr, CONT
     Route: 015
     Dates: start: 201106

REACTIONS (3)
  - Abdominal rigidity [None]
  - Abdominal distension [None]
  - Weight increased [None]
